FAERS Safety Report 15884715 (Version 1)
Quarter: 2019Q1

REPORT INFORMATION
  Report Type: Spontaneous
  Country: US (occurrence: US)
  Receive Date: 20190104
  Receipt Date: 20190104
  Transmission Date: 20190417
  Serious: No
  Sender: FDA-Public Use
  Company Number: None

PATIENT
  Age: 75 Year
  Sex: Female
  Weight: 65.77 kg

DRUGS (7)
  1. AMLODIPINE [Concomitant]
     Active Substance: AMLODIPINE BESYLATE
  2. ??LAMICTAL [Concomitant]
  3. METATONIN [Concomitant]
  4. IBUPROFEN 800MG [Suspect]
     Active Substance: IBUPROFEN
     Indication: RHEUMATOID ARTHRITIS
     Dosage: ?          QUANTITY:90 PILLS;?
     Route: 048
     Dates: end: 20190102
  5. ??BUPROPION [Concomitant]
  6. POTASSIUM [Concomitant]
     Active Substance: POTASSIUM
  7. OMEPAPROZOLE [Concomitant]

REACTIONS (5)
  - Rheumatoid arthritis [None]
  - Symptom recurrence [None]
  - Pain [None]
  - Drug ineffective [None]
  - Dysstasia [None]

NARRATIVE: CASE EVENT DATE: 20181221
